FAERS Safety Report 13982852 (Version 3)
Quarter: 2017Q4

REPORT INFORMATION
  Report Type: Spontaneous
  Country: US (occurrence: US)
  Receive Date: 20170918
  Receipt Date: 20171023
  Transmission Date: 20180321
  Serious: No
  Sender: FDA-Public Use
  Company Number: US-GLAXOSMITHKLINE-US2017GSK143799

PATIENT
  Sex: Female
  Weight: 49.44 kg

DRUGS (1)
  1. LAMOTRIGINE. [Suspect]
     Active Substance: LAMOTRIGINE
     Indication: SEIZURE
     Dosage: 150 MG, UNK
     Route: 048

REACTIONS (3)
  - Adverse drug reaction [Unknown]
  - Product substitution issue [Unknown]
  - Medication error [Unknown]
